FAERS Safety Report 8485459-5 (Version None)
Quarter: 2012Q3

REPORT INFORMATION
  Report Type: 
  Country: None (occurrence: None)
  Receive Date: 20120703
  Receipt Date: 20120627
  Transmission Date: 20120928
  Serious: Yes (Life-Threatening, Hospitalization)
  Sender: FDA-Public Use
  Company Number: CO-ROCHE-1081626

PATIENT
  Sex: Male

DRUGS (1)
  1. XOLAIR [Suspect]
     Indication: ASTHMA
     Dosage: QMO
     Route: 058
     Dates: start: 20120305, end: 20120526

REACTIONS (1)
  - CEREBROVASCULAR ACCIDENT [None]
